FAERS Safety Report 8486883-7 (Version None)
Quarter: 2012Q3

REPORT INFORMATION
  Report Type: 
  Country: None (occurrence: None)
  Receive Date: 20120704
  Receipt Date: 20120626
  Transmission Date: 20120928
  Serious: Yes (Hospitalization)
  Sender: FDA-Public Use
  Company Number: DE-BRISTOL-MYERS SQUIBB COMPANY-16528531

PATIENT
  Sex: Male

DRUGS (4)
  1. HYDREA [Suspect]
     Indication: WHITE BLOOD CELL COUNT INCREASED
     Dosage: 1DF:1 CAP TO BEGIN WITH AND THEN ALTERNATED BETW TAKING 1 AND 2 TAB EVERY 8 DAYS
     Dates: end: 20120415
  2. ACC 200 [Concomitant]
  3. COTRIM [Concomitant]
     Dosage: COTRIM 20
  4. HYDREA [Suspect]
     Indication: PLATELET COUNT INCREASED
     Dosage: 1DF:1 CAP TO BEGIN WITH AND THEN ALTERNATED BETW TAKING 1 AND 2 TAB EVERY 8 DAYS
     Dates: end: 20120415

REACTIONS (1)
  - PNEUMONIA [None]
